FAERS Safety Report 5316262-2 (Version None)
Quarter: 2007Q2

REPORT INFORMATION
  Report Type: 
  Country: None (occurrence: None)
  Receive Date: 20070430
  Receipt Date: 20070418
  Transmission Date: 20071010
  Serious: Yes (Hospitalization)
  Sender: FDA-Public Use
  Company Number: 16306

PATIENT
  Age: 53 Year
  Sex: Male
  Weight: 58.514 kg

DRUGS (1)
  1. HYDROMORPHONE HCL [Suspect]
     Indication: ANALGESIC EFFECT

REACTIONS (2)
  - CATHETER RELATED INFECTION [None]
  - PSEUDOMONAS INFECTION [None]
